FAERS Safety Report 8437208-4 (Version None)
Quarter: 2012Q2

REPORT INFORMATION
  Report Type: 
  Country: None (occurrence: None)
  Receive Date: 20120614
  Receipt Date: 20120326
  Transmission Date: 20120825
  Serious: No
  Sender: FDA-Public Use
  Company Number: US-AMGEN-USASP2011053222

PATIENT
  Age: 78 Year
  Sex: Female

DRUGS (13)
  1. ASACOL [Concomitant]
     Dosage: 800 MG, BID
  2. MULTI-VITAMINS [Concomitant]
     Dosage: UNK
  3. VARICELLA-ZOSTER IMMUNE GLOBULIN (HUMAN) [Concomitant]
     Dosage: UNK
     Dates: start: 20110801
  4. PROLIA [Suspect]
     Indication: OSTEOPOROSIS POSTMENOPAUSAL
     Dosage: 60 MG, UNK
     Dates: start: 20110201
  5. METOPROLOL TARTRATE [Concomitant]
     Dosage: UNK
  6. PREDNISOLONE [Concomitant]
     Dosage: UNK
  7. VALCYTE [Concomitant]
     Indication: CYTOMEGALOVIRUS INFECTION
     Dosage: UNK
     Dates: start: 20110501, end: 20110101
  8. LEVOTHYROXINE SODIUM [Concomitant]
     Dosage: UNK
  9. DERMATOLOGICALS [Concomitant]
     Indication: RASH
     Dosage: UNK
  10. PLAVIX [Concomitant]
     Dosage: UNK
  11. OXYBUTYNIN [Concomitant]
     Dosage: UNK
  12. ASACOL [Concomitant]
  13. CELLUVISC [Concomitant]
     Dosage: UNK

REACTIONS (4)
  - COLITIS ULCERATIVE [None]
  - CYTOMEGALOVIRUS INFECTION [None]
  - RASH PRURITIC [None]
  - BURSITIS [None]
